FAERS Safety Report 14188477 (Version 1)
Quarter: 2017Q4

REPORT INFORMATION
  Report Type: Spontaneous
  Country: KR (occurrence: KR)
  Receive Date: 20171114
  Receipt Date: 20171114
  Transmission Date: 20180321
  Serious: Yes (Other)
  Sender: FDA-Public Use
  Company Number: KR-TERSERA THERAPEUTICS, LLC-2034045

PATIENT
  Age: 49 Year
  Sex: Female

DRUGS (2)
  1. ZOLADEX [Suspect]
     Active Substance: GOSERELIN ACETATE
     Indication: BREAST CANCER
     Route: 058
  2. NOLVADEX D [Suspect]
     Active Substance: TAMOXIFEN CITRATE
     Route: 048

REACTIONS (3)
  - Depression suicidal [Recovered/Resolved]
  - Middle insomnia [Recovered/Resolved]
  - Lethargy [Recovered/Resolved]

NARRATIVE: CASE EVENT DATE: 201709
